FAERS Safety Report 4341445-8 (Version None)
Quarter: 2004Q2

REPORT INFORMATION
  Report Type: 
  Country: None (occurrence: None)
  Receive Date: 20040414
  Receipt Date: 20040330
  Transmission Date: 20050107
  Serious: Yes (Death)
  Sender: FDA-Public Use
  Company Number: 205601

PATIENT
  Sex: 0

DRUGS (1)
  1. MABTHERA (RITUXIMAB) CONC FOR SOLUTION FOR INFUSION [Suspect]
     Indication: CASTLEMAN'S DISEASE
     Dosage: 375 MG/M2, 1/WEEK, INTRAVENOUS
     Route: 042

REACTIONS (1)
  - SEPTIC SHOCK [None]
